FAERS Safety Report 5794258-4 (Version None)
Quarter: 2008Q2

REPORT INFORMATION
  Report Type: 
  Country: None (occurrence: None)
  Receive Date: 20080627
  Receipt Date: 20080618
  Transmission Date: 20081010
  Serious: Yes (Hospitalization)
  Sender: FDA-Public Use
  Company Number: FR-PFIZER INC-2008051814

PATIENT
  Sex: Male

DRUGS (4)
  1. FLUCONAZOLE [Suspect]
     Route: 048
     Dates: start: 20080122, end: 20080125
  2. CIPROFLOXACIN HCL [Interacting]
     Route: 048
     Dates: start: 20080106, end: 20080124
  3. CEFTRIAXONE [Interacting]
     Route: 058
  4. FLUINDIONE [Interacting]
     Indication: ATRIAL FIBRILLATION
     Route: 048

REACTIONS (1)
  - INTERNATIONAL NORMALISED RATIO INCREASED [None]
